FAERS Safety Report 18198383 (Version 1)
Quarter: 2020Q3

REPORT INFORMATION
  Report Type: Spontaneous
  Country: ES (occurrence: ES)
  Receive Date: 20200826
  Receipt Date: 20200826
  Transmission Date: 20201103
  Serious: Yes (Other)
  Sender: FDA-Public Use
  Company Number: ES-TEVA-2020-ES-1819639

PATIENT
  Age: 69 Year
  Sex: Female

DRUGS (4)
  1. CALCIFEDIOL (547A) [Concomitant]
     Active Substance: CALCIFEDIOL
     Indication: OSTEOPOROSIS
     Dosage: 0.266 MG
     Route: 048
     Dates: start: 20200130
  2. ATORVASTATINA 20 MG 28 COMPRIMIDOS [Suspect]
     Active Substance: ATORVASTATIN
     Indication: HYPERLIPIDAEMIA
     Dosage: 20 MG
     Route: 048
     Dates: start: 20200130, end: 20200703
  3. CALCIO CARBONATO + COLECALCIFEROL [Concomitant]
     Indication: OSTEOPOROSIS
     Route: 048
     Dates: start: 20200131
  4. PROLIA 60 MG SOLUCION INYECTABLE EN JERINGA PRECARGADA, 1 JERINGA PREC [Concomitant]
     Indication: OSTEOPOROSIS
     Dosage: 1 DOSAGE FORM
     Route: 058
     Dates: start: 20200131

REACTIONS (5)
  - Hypervitaminosis D [Unknown]
  - Cholestasis [Unknown]
  - Cell death [Unknown]
  - Hypocalcaemia [Unknown]
  - Pruritus [Unknown]

NARRATIVE: CASE EVENT DATE: 20200720
